FAERS Safety Report 8461661-3 (Version None)
Quarter: 2012Q2

REPORT INFORMATION
  Report Type: 
  Country: None (occurrence: None)
  Receive Date: 20120625
  Receipt Date: 20120611
  Transmission Date: 20120825
  Serious: Yes (Death)
  Sender: FDA-Public Use
  Company Number: FR-CELGENEUS-056-21880-12061519

PATIENT
  Sex: Female
  Weight: 31.78 kg

DRUGS (10)
  1. MOTILIUM [Concomitant]
     Route: 065
  2. REVLIMID [Suspect]
     Indication: MULTIPLE MYELOMA
     Dosage: 15 MILLIGRAM
     Route: 048
     Dates: start: 20120119, end: 20120510
  3. BACTRIM [Concomitant]
     Route: 065
  4. INNOHEP [Concomitant]
     Indication: ARRHYTHMIA
     Route: 065
     Dates: end: 20120501
  5. INNOHEP [Concomitant]
  6. ACETAMINOPHEN [Concomitant]
     Route: 065
  7. INNOHEP [Concomitant]
     Indication: PHLEBITIS
  8. VALACYCLOVIR HYDROCHLORIDE [Concomitant]
     Route: 065
  9. VOGALENE [Concomitant]
     Route: 065
  10. DEXAMETHASONE [Suspect]
     Indication: MULTIPLE MYELOMA
     Dosage: 10 MILLIGRAM
     Route: 048
     Dates: start: 20120119, end: 20120510

REACTIONS (1)
  - DEATH [None]
